FAERS Safety Report 9265229 (Version 1)
Quarter: 2013Q2

REPORT INFORMATION
  Report Type: Spontaneous
  Country: ES (occurrence: ES)
  Receive Date: 20130501
  Receipt Date: 20130501
  Transmission Date: 20140414
  Serious: Yes (Other)
  Sender: FDA-Public Use
  Company Number: ES-BRISTOL-MYERS SQUIBB COMPANY-18816090

PATIENT
  Sex: Female

DRUGS (2)
  1. ATAZANAVIR [Suspect]
  2. TRUVADA [Suspect]

REACTIONS (1)
  - Nephropathy [Recovering/Resolving]
